FAERS Safety Report 25013698 (Version 1)
Quarter: 2025Q1

REPORT INFORMATION
  Report Type: Spontaneous
  Country: US (occurrence: US)
  Receive Date: 20250226
  Receipt Date: 20250226
  Transmission Date: 20250408
  Serious: No
  Sender: UCB
  Company Number: US-UCBSA-2024028641

PATIENT
  Sex: Male

DRUGS (1)
  1. KEPPRA [Suspect]
     Active Substance: LEVETIRACETAM
     Indication: Seizure
     Dosage: 500 MILLIGRAM, 2X/DAY (BID) 1000 MILLIGRAM, 2X/DAY (BID) (500MG TABLETS, 2 TABS TWICE DAILY)

REACTIONS (1)
  - Dysphagia [Not Recovered/Not Resolved]
